FAERS Safety Report 23974126 (Version 6)
Quarter: 2025Q1

REPORT INFORMATION
  Report Type: Spontaneous
  Country: US (occurrence: US)
  Receive Date: 20240614
  Receipt Date: 20250320
  Transmission Date: 20250409
  Serious: Yes (Other)
  Sender: MERCK SHARP & DOHME LLC
  Company Number: US-009507513-2406USA002171

PATIENT
  Age: 70 Year
  Sex: Female

DRUGS (23)
  1. KEYTRUDA [Suspect]
     Active Substance: PEMBROLIZUMAB
     Indication: Rectal cancer
     Dosage: DOSE DESCRIPTION : UNK, Q3W
     Dates: start: 20240423, end: 20240423
  2. KEYTRUDA [Suspect]
     Active Substance: PEMBROLIZUMAB
     Indication: Rectal cancer
     Dosage: DOSE DESCRIPTION : UNK, Q3W
     Dates: start: 20240507, end: 20240507
  3. KEYTRUDA [Suspect]
     Active Substance: PEMBROLIZUMAB
     Indication: Rectal cancer
     Dosage: DOSE DESCRIPTION : UNK, Q3W
     Dates: start: 20240528, end: 20240528
  4. LONSURF [Suspect]
     Active Substance: TIPIRACIL HYDROCHLORIDE\TRIFLURIDINE
     Indication: Rectal cancer
     Route: 048
     Dates: start: 2024
  5. LONSURF [Suspect]
     Active Substance: TIPIRACIL HYDROCHLORIDE\TRIFLURIDINE
     Indication: Rectal cancer
     Route: 048
     Dates: start: 2024, end: 20240408
  6. LONSURF [Suspect]
     Active Substance: TIPIRACIL HYDROCHLORIDE\TRIFLURIDINE
     Indication: Rectal cancer
     Route: 048
     Dates: start: 2024
  7. BENADRYL [Concomitant]
     Active Substance: DIPHENHYDRAMINE HYDROCHLORIDE
  8. FUROSEMIDE [Concomitant]
     Active Substance: FUROSEMIDE
  9. HYDROCHLOROTHIAZIDE [Concomitant]
     Active Substance: HYDROCHLOROTHIAZIDE
  10. HYDROMORPHONE [Concomitant]
     Active Substance: HYDROMORPHONE
  11. IBUPROFEN [Concomitant]
     Active Substance: IBUPROFEN
  12. LOSARTAN POTASSIUM [Concomitant]
     Active Substance: LOSARTAN POTASSIUM
  13. VITAMINS NOS [Concomitant]
     Active Substance: VITAMINS
  14. ONDANSETRON [Concomitant]
     Active Substance: ONDANSETRON
     Route: 048
  15. POTASSIUM [Concomitant]
     Active Substance: POTASSIUM
  16. PROCHLORPERAZINE [Concomitant]
     Active Substance: PROCHLORPERAZINE
  17. TRIAMCINOLONE [Concomitant]
     Active Substance: TRIAMCINOLONE
  18. TYLENOL [Concomitant]
     Active Substance: ACETAMINOPHEN
  19. VITAMIN D2 [Concomitant]
     Active Substance: ERGOCALCIFEROL
  20. GUAIFENESIN [Concomitant]
     Active Substance: GUAIFENESIN
  21. KLOR-CON [Concomitant]
     Active Substance: POTASSIUM CHLORIDE
  22. LOMOTIL [Concomitant]
     Active Substance: ATROPINE SULFATE\DIPHENOXYLATE HYDROCHLORIDE
  23. CIPRO [Concomitant]
     Active Substance: CIPROFLOXACIN HYDROCHLORIDE

REACTIONS (14)
  - Malignant neoplasm progression [Unknown]
  - Arthralgia [Not Recovered/Not Resolved]
  - Urinary tract infection [Not Recovered/Not Resolved]
  - Brain fog [Unknown]
  - Pain [Unknown]
  - Hepatic steatosis [Unknown]
  - Diarrhoea [Unknown]
  - Inappropriate schedule of product administration [Unknown]
  - Nausea [Unknown]
  - Amnesia [Unknown]
  - Product distribution issue [Unknown]
  - Product dose omission issue [Unknown]
  - Alopecia [Not Recovered/Not Resolved]
  - Fatigue [Not Recovered/Not Resolved]

NARRATIVE: CASE EVENT DATE: 20240101
